FAERS Safety Report 9667665 (Version 1)
Quarter: 2013Q4

REPORT INFORMATION
  Report Type: Spontaneous
  Country: FR (occurrence: FR)
  Receive Date: 20131104
  Receipt Date: 20131104
  Transmission Date: 20140711
  Serious: Yes (Hospitalization, Other)
  Sender: FDA-Public Use
  Company Number: FR-PFIZER INC-2013309611

PATIENT
  Age: 52 Year
  Sex: Female

DRUGS (7)
  1. LYRICA [Suspect]
     Indication: BONE PAIN
     Dosage: 25 MG, 2X/DAY
     Route: 048
     Dates: start: 20130904, end: 20130909
  2. CORTANCYL [Concomitant]
     Indication: BONE PAIN
     Dosage: 60 MG, UNK
     Route: 048
     Dates: start: 20130904, end: 20130920
  3. CORTANCYL [Concomitant]
     Indication: PREMEDICATION
  4. CISPLATINE MYLAN [Concomitant]
     Indication: LUNG NEOPLASM MALIGNANT
     Dosage: 131 MG, UNK
     Dates: end: 2013
  5. ALIMTA [Concomitant]
     Indication: LUNG NEOPLASM MALIGNANT
     Dosage: 870 MG, UNK
  6. EMEND [Concomitant]
     Indication: PREMEDICATION
     Dosage: 125 MG, UNK
     Dates: end: 2013
  7. ZOPHREN [Concomitant]
     Indication: PREMEDICATION
     Dosage: 8 MG, UNK
     Dates: end: 2013

REACTIONS (4)
  - Back pain [Unknown]
  - Optic neuropathy [Unknown]
  - Visual field defect [Unknown]
  - Visual acuity reduced [Recovering/Resolving]
